FAERS Safety Report 22181702 (Version 1)
Quarter: 2023Q2

REPORT INFORMATION
  Report Type: Spontaneous
  Country: US (occurrence: US)
  Receive Date: 20230406
  Receipt Date: 20230406
  Transmission Date: 20230722
  Serious: No
  Sender: FDA-Public Use
  Company Number: US-009507513-2303USA007862

PATIENT
  Age: 72 Year
  Sex: Male

DRUGS (2)
  1. VERQUVO [Suspect]
     Active Substance: VERICIGUAT
     Indication: Cardiac failure congestive
     Dosage: 2.5 GRAM, QD
     Route: 048
     Dates: start: 20230212, end: 20230312
  2. VERQUVO [Suspect]
     Active Substance: VERICIGUAT
     Dosage: 2.5 GRAM, QD
     Route: 048
     Dates: start: 20230328

REACTIONS (2)
  - Peripheral swelling [Unknown]
  - Muscular weakness [Unknown]

NARRATIVE: CASE EVENT DATE: 20230201
